FAERS Safety Report 8962926 (Version 1)
Quarter: 2012Q4

REPORT INFORMATION
  Report Type: 
  Country: US (occurrence: US)
  Receive Date: 20121214
  Receipt Date: 20121214
  Transmission Date: 20130627
  Serious: No
  Sender: FDA-Public Use
  Company Number: US-MYLANLABS-2012S1022661

PATIENT
  Age: 80 Year
  Sex: Female
  Weight: 44.45 kg

DRUGS (1)
  1. HYDROXYZINE HYDROCHLORIDE [Suspect]
     Indication: INSOMNIA
     Dosage: at bedtime
     Dates: start: 20120831, end: 201210

REACTIONS (3)
  - Dyspepsia [Recovered/Resolved]
  - Abdominal pain [Recovered/Resolved]
  - Reaction to drug excipients [Recovered/Resolved]
